FAERS Safety Report 11503961 (Version 2)
Quarter: 2016Q3

REPORT INFORMATION
  Report Type: Spontaneous
  Country: DK (occurrence: DK)
  Receive Date: 20150914
  Receipt Date: 20160901
  Transmission Date: 20161109
  Serious: Yes (Hospitalization)
  Sender: FDA-Public Use
  Company Number: DK-FRI-1000079566

PATIENT
  Age: 83 Year
  Sex: Female
  Weight: 75 kg

DRUGS (2)
  1. DOLOL [Concomitant]
     Active Substance: TRAMADOL
     Indication: PAIN
  2. LINACLOTIDE [Suspect]
     Active Substance: LINACLOTIDE
     Indication: CONSTIPATION
     Dosage: 290 MCG
     Route: 048
     Dates: start: 20150821, end: 20150829

REACTIONS (2)
  - Swelling face [Recovered/Resolved]
  - Off label use [Recovered/Resolved]

NARRATIVE: CASE EVENT DATE: 20150821
